FAERS Safety Report 13390712 (Version 3)
Quarter: 2017Q2

REPORT INFORMATION
  Report Type: Spontaneous
  Country: PL (occurrence: PL)
  Receive Date: 20170331
  Receipt Date: 20170627
  Transmission Date: 20170830
  Serious: Yes (Hospitalization, Disabling)
  Sender: FDA-Public Use
  Company Number: PL-CELGENEUS-POL-2017035493

PATIENT
  Age: 68 Year
  Sex: Female

DRUGS (4)
  1. ABRAXANE [Suspect]
     Active Substance: PACLITAXEL
     Dosage: 15 MILLIGRAM
     Route: 041
     Dates: start: 20160428, end: 20160715
  2. GEMCITABINE [Suspect]
     Active Substance: GEMCITABINE\GEMCITABINE HYDROCHLORIDE
     Route: 065
     Dates: start: 20121105, end: 20130408
  3. ABRAXANE [Suspect]
     Active Substance: PACLITAXEL
     Indication: DUCTAL ADENOCARCINOMA OF PANCREAS
     Dosage: 188 MILLIGRAM
     Route: 041
     Dates: start: 20150217, end: 20160413
  4. GEMCITABINE [Suspect]
     Active Substance: GEMCITABINE\GEMCITABINE HYDROCHLORIDE
     Indication: DUCTAL ADENOCARCINOMA OF PANCREAS
     Route: 065
     Dates: start: 20140923

REACTIONS (2)
  - Scleroderma-like reaction [Not Recovered/Not Resolved]
  - Eczema asteatotic [Not Recovered/Not Resolved]

NARRATIVE: CASE EVENT DATE: 201505
